FAERS Safety Report 9374962 (Version 2)
Quarter: 2013Q3

REPORT INFORMATION
  Report Type: Spontaneous
  Country: FR (occurrence: FR)
  Receive Date: 20130628
  Receipt Date: 20130807
  Transmission Date: 20140515
  Serious: Yes (Disabling)
  Sender: FDA-Public Use
  Company Number: FR-SANOFI-AVENTIS-2013SA064358

PATIENT
  Age: 38 Year
  Sex: Female
  Weight: 53 kg

DRUGS (2)
  1. LOVENOX [Suspect]
     Indication: ULTRASOUND DOPPLER ABNORMAL
     Route: 058
     Dates: start: 20121004, end: 20130118
  2. ASPEGIC [Concomitant]
     Indication: ULTRASOUND DOPPLER ABNORMAL
     Route: 048
     Dates: start: 201207, end: 20121225

REACTIONS (5)
  - Osteoporotic fracture [Recovering/Resolving]
  - Exposure during pregnancy [Unknown]
  - Back pain [Recovering/Resolving]
  - Musculoskeletal chest pain [Recovering/Resolving]
  - Spinal cord compression [Recovering/Resolving]
